FAERS Safety Report 8774304 (Version 1)
Quarter: 2012Q4

REPORT INFORMATION
  Report Type: Report from Study
  Country: US (occurrence: US)
  Receive Date: 20120907
  Receipt Date: 20120907
  Transmission Date: 20130627
  Serious: Yes (Hospitalization)
  Sender: FDA-Public Use
  Company Number: US-UCBSA-064857

PATIENT
  Age: 27 Year
  Sex: Female
  Weight: 49.89 kg

DRUGS (18)
  1. CIMZIA [Suspect]
     Indication: CROHN^S DISEASE
     Dates: start: 20100304
  2. ASACOL [Concomitant]
     Indication: CROHN^S DISEASE
     Dosage: 400
     Dates: start: 19991105
  3. PREDNISONE [Concomitant]
     Indication: CROHN^S DISEASE
     Dosage: 20 MG
     Dates: start: 20081111
  4. PREDNISONE [Concomitant]
     Indication: CROHN^S DISEASE
     Dates: start: 2007, end: 2007
  5. PREDNISONE [Concomitant]
     Indication: CROHN^S DISEASE
     Dates: start: 2004, end: 2004
  6. PREDNISONE [Concomitant]
     Indication: CROHN^S DISEASE
     Dates: start: 2002, end: 2002
  7. LOMOTIL [Concomitant]
     Indication: DIARRHOEA
     Route: 048
     Dates: start: 20120403, end: 201205
  8. LOMOTIL [Concomitant]
     Indication: DIARRHOEA
     Dates: start: 201205
  9. ALBUTEROL [Concomitant]
     Indication: ASTHMA
     Dosage: AS NEEDED
     Route: 055
     Dates: start: 20081028
  10. DICYCLOMINE [Concomitant]
     Indication: ABDOMINAL PAIN
     Route: 048
  11. PRILOSEC [Concomitant]
     Dosage: 40 MG
  12. B12 [Concomitant]
  13. PHENERGAN [Concomitant]
     Indication: NAUSEA
     Dosage: 25 MG TWO TIMES DAILY, AS NEEDED
     Route: 048
     Dates: start: 20110412
  14. VICODIN [Concomitant]
     Indication: PAIN
     Route: 048
     Dates: start: 20120213
  15. FERROUS SULFATE [Concomitant]
     Indication: MINERAL SUPPLEMENTATION
     Route: 048
     Dates: start: 20120317
  16. OMEPRAZOLE [Concomitant]
     Indication: DYSPEPSIA
     Route: 048
     Dates: start: 20120403
  17. NEXIUM [Concomitant]
  18. CALCIUM CHLORIDE [Concomitant]

REACTIONS (1)
  - Gastroenteritis viral [Recovered/Resolved]
